FAERS Safety Report 8088480-4 (Version None)
Quarter: 2012Q1

REPORT INFORMATION
  Report Type: 
  Country: None (occurrence: None)
  Receive Date: 20120128
  Receipt Date: 20110429
  Transmission Date: 20120608
  Serious: No
  Sender: FDA-Public Use
  Company Number: US-ABBOTT-11P-163-0722637-00

PATIENT
  Age: 58 Year
  Sex: Male

DRUGS (9)
  1. MORPHINE [Concomitant]
     Indication: ANKYLOSING SPONDYLITIS
  2. NAPROXIN [Concomitant]
     Indication: PAIN
  3. UNKNOWN MEDICATION [Concomitant]
     Indication: WOUND
     Route: 061
  4. SIMVASTATIN [Concomitant]
     Indication: BLOOD CHOLESTEROL INCREASED
  5. VIT D3 [Concomitant]
     Indication: PRODUCT USED FOR UNKNOWN INDICATION
     Dosage: DAILY
  6. HUMIRA [Suspect]
     Indication: ANKYLOSING SPONDYLITIS
  7. OMEPRAZOLE [Concomitant]
     Indication: DYSPEPSIA
  8. ALENDRONATE SODIUM [Concomitant]
     Indication: OSTEOPOROSIS
  9. CALCIUM [Concomitant]
     Indication: PRODUCT USED FOR UNKNOWN INDICATION
     Dosage: DAILY

REACTIONS (2)
  - WOUND [None]
  - ORAL PAIN [None]
